FAERS Safety Report 9644518 (Version 1)
Quarter: 2013Q4

REPORT INFORMATION
  Report Type: Spontaneous
  Country: US (occurrence: US)
  Receive Date: 20131025
  Receipt Date: 20131025
  Transmission Date: 20140711
  Serious: Yes (Life-Threatening, Other)
  Sender: FDA-Public Use
  Company Number: US-LUNDBECK-DKLU1094702

PATIENT
  Sex: Male

DRUGS (1)
  1. ONFI [Suspect]
     Indication: PRODUCT USED FOR UNKNOWN INDICATION

REACTIONS (2)
  - Respiratory arrest [Recovered/Resolved]
  - Convulsion [Recovered/Resolved]
